FAERS Safety Report 9845933 (Version 1)
Quarter: 2014Q1

REPORT INFORMATION
  Report Type: Spontaneous
  Country: US (occurrence: None)
  Receive Date: 20140122
  Receipt Date: 20140122
  Transmission Date: 20141002
  Serious: Yes (Death)
  Sender: FDA-Public Use
  Company Number: B0960193A

PATIENT
  Age: 84 Year
  Sex: Female

DRUGS (5)
  1. CARVEDILOL (FORMULATION UKNOWN) (GENERIC) (CARVEDILOL) [Suspect]
     Route: 048
  2. AMLODIPINE (FORMULATION UNKNOWN) (GENERIC) (AMLODIPINE) [Suspect]
     Route: 048
  3. LOSARTAN POTASSIUM (FORMULATION UNKNOWN) (GENERIC) (LOSARTAN POTASSIUM) [Suspect]
     Route: 048
  4. CLONAZEPAM (FORMULATION UNKNOWN) (GENERIC) (CLONAZEPAM) [Suspect]
     Route: 048
  5. FUROSEMIDE (FORMULATION UNKNOWN) (GENERIC) (FUROSEMIDE) [Suspect]
     Route: 048

REACTIONS (1)
  - Exposure via ingestion [None]
